FAERS Safety Report 19775218 (Version 4)
Quarter: 2022Q4

REPORT INFORMATION
  Report Type: Report from Study
  Country: US (occurrence: US)
  Receive Date: 20210902
  Receipt Date: 20221123
  Transmission Date: 20230113
  Serious: Yes (Death, Other)
  Sender: FDA-Public Use
  Company Number: US-ACADIA PHARMACEUTICALS INC.-ACA-2021-PIM-003098

PATIENT
  Age: 80 Year
  Sex: Female

DRUGS (16)
  1. NUPLAZID [Suspect]
     Active Substance: PIMAVANSERIN TARTRATE
     Indication: Parkinson^s disease
     Dosage: 34 MILLIGRAM, QD
     Route: 048
     Dates: start: 20210726
  2. NUPLAZID [Suspect]
     Active Substance: PIMAVANSERIN TARTRATE
     Dosage: 34 MILLIGRAM, QD
     Route: 048
  3. LEVOTHYROXINE [Concomitant]
     Active Substance: LEVOTHYROXINE
  4. AMLODIPINE [Concomitant]
     Active Substance: AMLODIPINE BESYLATE
  5. SODIUM CHLORIDE [Concomitant]
     Active Substance: SODIUM CHLORIDE
  6. CARBIDOPA\LEVODOPA [Concomitant]
     Active Substance: CARBIDOPA\LEVODOPA
  7. SERTRALINE [Concomitant]
     Active Substance: SERTRALINE HYDROCHLORIDE
  8. ATORVASTATIN [Concomitant]
     Active Substance: ATORVASTATIN
  9. PANTOPRAZOLE [Concomitant]
     Active Substance: PANTOPRAZOLE
  10. QUETIAPINE [Concomitant]
     Active Substance: QUETIAPINE
  11. METOPROLOL [Concomitant]
     Active Substance: METOPROLOL
  12. BACLOFEN [Concomitant]
     Active Substance: BACLOFEN
  13. TRAZODONE [Concomitant]
     Active Substance: TRAZODONE HYDROCHLORIDE
  14. HYDROCODONE BITARTRATE AND ACETAMINOPHEN [Concomitant]
     Active Substance: ACETAMINOPHEN\HYDROCODONE BITARTRATE
  15. GOCOVRI [Concomitant]
     Active Substance: AMANTADINE
  16. ONGENTYS [Concomitant]
     Active Substance: OPICAPONE
     Dosage: 25 MILLIGRAM

REACTIONS (7)
  - Death [Fatal]
  - Lumbar vertebral fracture [Not Recovered/Not Resolved]
  - Fall [Not Recovered/Not Resolved]
  - Impulse-control disorder [Unknown]
  - Obsessive-compulsive disorder [Unknown]
  - Hallucination [Unknown]
  - Hallucination [Unknown]

NARRATIVE: CASE EVENT DATE: 20210806
